FAERS Safety Report 18970372 (Version 1)
Quarter: 2021Q1

REPORT INFORMATION
  Report Type: Other
  Country: FR (occurrence: FR)
  Receive Date: 20210305
  Receipt Date: 20210305
  Transmission Date: 20210420
  Serious: Yes (Hospitalization)
  Sender: FDA-Public Use
  Company Number: FR-CELLTRION INC.-2021FR002592

PATIENT

DRUGS (1)
  1. RITUXIMAB (UNKNOWN) [Suspect]
     Active Substance: RITUXIMAB
     Indication: MARGINAL ZONE LYMPHOMA
     Dosage: 268 MG (FREQUENCY: 1 TOTAL)
     Route: 042
     Dates: start: 20200909, end: 20200909

REACTIONS (2)
  - Hepatocellular injury [Recovered/Resolved]
  - Off label use [Unknown]

NARRATIVE: CASE EVENT DATE: 20200910
